FAERS Safety Report 10517270 (Version 1)
Quarter: 2014Q4

REPORT INFORMATION
  Report Type: Spontaneous
  Country: DE (occurrence: DE)
  Receive Date: 20141014
  Receipt Date: 20141014
  Transmission Date: 20150528
  Serious: Yes (Congenital Anomaly)
  Sender: FDA-Public Use
  Company Number: DE-ASTRAZENECA-2014SE76515

PATIENT
  Sex: Male

DRUGS (10)
  1. ESTRIFAM [Concomitant]
     Active Substance: ESTRADIOL
     Indication: ASSISTED FERTILISATION
     Route: 064
  2. PROGESTERONE. [Concomitant]
     Active Substance: PROGESTERONE
     Indication: ASSISTED FERTILISATION
     Dosage: DOSAGE UNKNOWN
     Route: 064
  3. PREDNISOLON [Concomitant]
     Active Substance: PREDNISOLONE
     Indication: ASSISTED FERTILISATION
     Route: 064
  4. CERGEM [Concomitant]
     Indication: ABORTION INDUCED
     Route: 064
     Dates: start: 20140606, end: 20140610
  5. CLEXANE 40 [Concomitant]
     Indication: PLASMINOGEN ACTIVATOR INHIBITOR POLYMORPHISM
     Route: 064
  6. SEROQUEL [Suspect]
     Active Substance: QUETIAPINE FUMARATE
     Indication: BIPOLAR DISORDER
     Route: 064
     Dates: start: 20140307, end: 20140610
  7. ASPIRIN. [Concomitant]
     Active Substance: ASPIRIN
     Indication: PLASMINOGEN ACTIVATOR INHIBITOR POLYMORPHISM
     Route: 064
  8. L-THYROXIN [Concomitant]
     Active Substance: LEVOTHYROXINE SODIUM
     Indication: AUTOIMMUNE THYROIDITIS
     Route: 064
     Dates: start: 20140307, end: 20140609
  9. FOLSAURE [Concomitant]
     Active Substance: FOLIC ACID
     Indication: PROPHYLAXIS OF NEURAL TUBE DEFECT
     Route: 064
  10. CYTOTEC [Concomitant]
     Active Substance: MISOPROSTOL
     Indication: ABORTION INDUCED
     Route: 064
     Dates: start: 20140609, end: 20140609

REACTIONS (1)
  - Encephalocele [Not Recovered/Not Resolved]
